FAERS Safety Report 10986101 (Version 1)
Quarter: 2015Q2

REPORT INFORMATION
  Report Type: Spontaneous
  Country: US (occurrence: None)
  Receive Date: 20150403
  Receipt Date: 20150403
  Transmission Date: 20150821
  Serious: Yes (Other)
  Sender: FDA-Public Use
  Company Number: None

PATIENT
  Age: 61 Year
  Sex: Female
  Weight: 57.61 kg

DRUGS (7)
  1. ESOMEPRA [Suspect]
     Active Substance: ESOMEPRAZOLE
     Indication: ULCER
     Dosage: TAKEN BY MOUTH
     Dates: start: 20150317, end: 20150322
  2. VERAPAMIL [Concomitant]
     Active Substance: VERAPAMIL HYDROCHLORIDE
  3. TRAZODONE [Concomitant]
     Active Substance: TRAZODONE HYDROCHLORIDE
  4. DULCOLAX [Concomitant]
     Active Substance: BISACODYL OR DOCUSATE SODIUM
  5. NEXIUM [Concomitant]
     Active Substance: ESOMEPRAZOLE MAGNESIUM
  6. IRBESARTAN. [Concomitant]
     Active Substance: IRBESARTAN
  7. BENADRYL [Concomitant]
     Active Substance: DIPHENHYDRAMINE HYDROCHLORIDE

REACTIONS (6)
  - Rash pruritic [None]
  - Rash generalised [None]
  - Muscle spasms [None]
  - Product substitution issue [None]
  - Pain [None]
  - Rash erythematous [None]

NARRATIVE: CASE EVENT DATE: 20150322
